FAERS Safety Report 19945025 (Version 1)
Quarter: 2021Q4

REPORT INFORMATION
  Report Type: Spontaneous
  Country: DE (occurrence: DE)
  Receive Date: 20211012
  Receipt Date: 20211012
  Transmission Date: 20220303
  Serious: Yes (Other)
  Sender: FDA-Public Use
  Company Number: DE-TEVA-2021-DE-1924181

PATIENT
  Age: 6 Decade
  Sex: Female

DRUGS (6)
  1. FUROSEMIDE [Suspect]
     Active Substance: FUROSEMIDE
     Indication: Renal impairment
     Dosage: 40 MILLIGRAM, QD (TAKEN SINCE 25-30 YEARS, IN THE EVENING)
     Route: 048
     Dates: start: 1996, end: 2016
  2. FUROSEMIDE [Suspect]
     Active Substance: FUROSEMIDE
     Indication: Dysuria
     Dosage: 40 MILLIGRAM, QD (FUROSEMID RATIOPHARM 40MG WAS TAKEN FOR ONE WEEK)
     Route: 048
     Dates: start: 202106, end: 202106
  3. FUROSEMIDE [Suspect]
     Active Substance: FUROSEMIDE
     Indication: Dysuria
     Dosage: UNK
  4. FUROSEMIDE [Suspect]
     Active Substance: FUROSEMIDE
     Indication: Renal impairment
     Dosage: 30 MILLIGRAM, QD (IN THE EVENING)
     Route: 048
     Dates: start: 2016, end: 202106
  5. LEVEMIR [Concomitant]
     Active Substance: INSULIN DETEMIR
     Indication: Type 1 diabetes mellitus
     Dosage: UNK
     Route: 065
  6. INSULIN HUMAN [Concomitant]
     Active Substance: INSULIN HUMAN
     Indication: Type 1 diabetes mellitus
     Dosage: UNK
     Route: 065

REACTIONS (2)
  - Dependence [Unknown]
  - Renal function test abnormal [Unknown]

NARRATIVE: CASE EVENT DATE: 20210101
